FAERS Safety Report 17791988 (Version 1)
Quarter: 2020Q2

REPORT INFORMATION
  Report Type: Spontaneous
  Country: US (occurrence: US)
  Receive Date: 20200515
  Receipt Date: 20200515
  Transmission Date: 20200714
  Serious: No
  Sender: FDA-Public Use
  Company Number: US-SUNOVION-2020SUN001484

PATIENT
  Age: 29 Year
  Sex: Male

DRUGS (3)
  1. LATUDA [Suspect]
     Active Substance: LURASIDONE HYDROCHLORIDE
     Dosage: 80 MG
     Route: 048
  2. LATUDA [Suspect]
     Active Substance: LURASIDONE HYDROCHLORIDE
     Dosage: 20 MG
     Route: 048
  3. LATUDA [Suspect]
     Active Substance: LURASIDONE HYDROCHLORIDE
     Dosage: UNK (SAMPLES)
     Route: 048

REACTIONS (9)
  - Feeling abnormal [Unknown]
  - Paranoia [Unknown]
  - Abdominal discomfort [Recovering/Resolving]
  - Drug tolerance [Unknown]
  - Sleep disorder [Unknown]
  - Fear [Unknown]
  - Weight increased [Recovering/Resolving]
  - Therapy interrupted [Unknown]
  - Treatment noncompliance [Unknown]

NARRATIVE: CASE EVENT DATE: 20200510
